FAERS Safety Report 21924639 (Version 1)
Quarter: 2023Q1

REPORT INFORMATION
  Report Type: Report from Study
  Country: NL (occurrence: NL)
  Receive Date: 20230130
  Receipt Date: 20230130
  Transmission Date: 20230417
  Serious: Yes (Death, Other)
  Sender: FDA-Public Use
  Company Number: NL-002147023-NVSC2023NL017975

PATIENT

DRUGS (2)
  1. TRAMETINIB [Suspect]
     Active Substance: TRAMETINIB
     Indication: T-cell lymphoma
     Dosage: UNK
     Route: 065
     Dates: start: 20220513, end: 20220516
  2. TRAMETINIB [Suspect]
     Active Substance: TRAMETINIB
     Dosage: UNK
     Route: 065
     Dates: start: 20220525, end: 20220603

REACTIONS (5)
  - Complications of bone marrow transplant [Fatal]
  - Neurotoxicity [Unknown]
  - Cardiac dysfunction [Unknown]
  - Neutropenia [Unknown]
  - Febrile infection [Unknown]
